FAERS Safety Report 8850725 (Version 2)
Quarter: 2012Q4

REPORT INFORMATION
  Report Type: 
  Country: CO (occurrence: CO)
  Receive Date: 20121019
  Receipt Date: 20121126
  Transmission Date: 20130627
  Serious: Yes (Hospitalization)
  Sender: FDA-Public Use
  Company Number: CO-PFIZER INC-2012260602

PATIENT
  Age: 43 Year
  Sex: Female

DRUGS (5)
  1. RAPAMUNE [Suspect]
     Indication: PROPHYLAXIS AGAINST RENAL TRANSPLANT REJECTION
     Dosage: 3 mg, daily
     Route: 048
     Dates: start: 2007
  2. LOVASTATIN [Concomitant]
     Indication: CHOLESTEROL
     Dosage: 20 mg, 1x/day
     Route: 048
     Dates: start: 2006
  3. MYFORTIC [Concomitant]
     Indication: KIDNEY TRANSPLANT
     Dosage: 6 tablets per day of 180 mg
     Route: 048
     Dates: start: 2006
  4. OMEPRAZOL [Concomitant]
     Indication: PROPHYLAXIS AGAINST GASTROINTESTINAL ULCER
     Dosage: 20 mg, 1x/day
     Route: 048
     Dates: start: 2005
  5. LORATADINE [Concomitant]
     Indication: NASAL CONGESTION
     Dosage: UNK

REACTIONS (1)
  - Arteriovenous fistula [Recovering/Resolving]
